FAERS Safety Report 8643680 (Version 26)
Quarter: 2019Q3

REPORT INFORMATION
  Report Type: Report from Study
  Country: CA (occurrence: CA)
  Receive Date: 20120629
  Receipt Date: 20190704
  Transmission Date: 20191005
  Serious: Yes (Hospitalization, Other)
  Sender: FDA-Public Use
  Company Number: CA-ROCHE-1082591

PATIENT
  Age: 60 Year
  Sex: Female
  Weight: 69 kg

DRUGS (9)
  1. GABAPENTIN. [Concomitant]
     Active Substance: GABAPENTIN
  2. WELLBUTRIN [Concomitant]
     Active Substance: BUPROPION HYDROCHLORIDE
  3. TRAZODONE [Concomitant]
     Active Substance: TRAZODONE HYDROCHLORIDE
  4. TYLENOL WITH CODEINE [Concomitant]
     Active Substance: ACETAMINOPHEN\CODEINE PHOSPHATE
     Dosage: AS NEEDED
     Route: 065
  5. ARTHROTEC [Concomitant]
     Active Substance: DICLOFENAC SODIUM\MISOPROSTOL
  6. TOPAMAX [Concomitant]
     Active Substance: TOPIRAMATE
  7. ACTEMRA [Suspect]
     Active Substance: TOCILIZUMAB
     Indication: RHEUMATOID ARTHRITIS
     Route: 042
     Dates: start: 20110414
  8. ASPIRIN [ACETYLSALICYLIC ACID] [Concomitant]
     Active Substance: ASPIRIN
  9. EFFEXOR [Concomitant]
     Active Substance: VENLAFAXINE HYDROCHLORIDE

REACTIONS (16)
  - Bronchitis [Not Recovered/Not Resolved]
  - Device occlusion [Unknown]
  - Hypotension [Recovered/Resolved]
  - Tooth disorder [Unknown]
  - Blood pressure diastolic decreased [Unknown]
  - Malaise [Recovered/Resolved]
  - Tooth infection [Not Recovered/Not Resolved]
  - Pancreatitis [Recovered/Resolved]
  - Blood pressure increased [Unknown]
  - Weight increased [Unknown]
  - Body temperature decreased [Unknown]
  - Gastroenteritis viral [Not Recovered/Not Resolved]
  - Viral infection [Recovered/Resolved]
  - Sinusitis [Unknown]
  - Infusion related reaction [Unknown]
  - Weight decreased [Unknown]

NARRATIVE: CASE EVENT DATE: 20120608
